FAERS Safety Report 20034605 (Version 1)
Quarter: 2021Q4

REPORT INFORMATION
  Report Type: Spontaneous
  Country: US (occurrence: US)
  Receive Date: 20211104
  Receipt Date: 20211104
  Transmission Date: 20220303
  Serious: No
  Sender: FDA-Public Use
  Company Number: US-Fresenius Medical Care Renal Therapies Group-FMC-2109-001481

PATIENT
  Sex: Female
  Weight: 134 kg

DRUGS (2)
  1. DELFLEX WITH DEXTROSE 2.5% LOW MAGNESIUM LOW CALCIUM [Suspect]
     Active Substance: CALCIUM CHLORIDE\DEXTROSE\MAGNESIUM CHLORIDE\SODIUM CHLORIDE\SODIUM LACTATE
     Indication: End stage renal disease
     Dosage: 5 TREATMENT CYCLES, 2400 ML FILL VOLUMES, NO LAST FILL, PD SOLUTION STRENGTH 2.5% AND 4.25%
     Route: 033
  2. DELFLEX WITH DEXTROSE 4.25% LOW MAGNESIUM LOW CALCIUM [Suspect]
     Active Substance: CALCIUM CHLORIDE\DEXTROSE\MAGNESIUM CHLORIDE\SODIUM CHLORIDE\SODIUM LACTATE
     Indication: End stage renal disease
     Dosage: 5 TREATMENT CYCLES, 2400 ML FILL VOLUMES, NO LAST FILL, PD SOLUTION STRENGTH 2.5% AND 4.25%
     Route: 033

REACTIONS (2)
  - White blood cell count increased [Recovered/Resolved]
  - Hypervolaemia [Recovered/Resolved]
